FAERS Safety Report 25815112 (Version 1)
Quarter: 2025Q3

REPORT INFORMATION
  Report Type: Spontaneous
  Country: JP (occurrence: JP)
  Receive Date: 20250918
  Receipt Date: 20250918
  Transmission Date: 20251021
  Serious: Yes (Hospitalization, Other)
  Sender: MERCK SHARP & DOHME LLC
  Company Number: JP-009507513-2296225

PATIENT
  Age: 67 Year
  Sex: Female
  Weight: 60 kg

DRUGS (1)
  1. KEYTRUDA [Suspect]
     Active Substance: PEMBROLIZUMAB
     Indication: Oesophageal carcinoma
     Route: 041
     Dates: start: 20240214

REACTIONS (4)
  - Immune-mediated adverse reaction [Recovering/Resolving]
  - Immune-mediated adverse reaction [Recovered/Resolved]
  - Adrenal insufficiency [Recovering/Resolving]
  - Encephalitis [Recovered/Resolved]

NARRATIVE: CASE EVENT DATE: 20250319
